FAERS Safety Report 11789821 (Version 1)
Quarter: 2015Q4

REPORT INFORMATION
  Report Type: Spontaneous
  Country: US (occurrence: US)
  Receive Date: 20151201
  Receipt Date: 20151201
  Transmission Date: 20160305
  Serious: No
  Sender: FDA-Public Use
  Company Number: US-ACTELION PHARMACEUTICALS US, INC.-A-US2015-127769

PATIENT
  Age: 65 Year
  Sex: Female

DRUGS (12)
  1. PEPCID [Concomitant]
     Active Substance: FAMOTIDINE
  2. ASPIRIN. [Concomitant]
     Active Substance: ASPIRIN
  3. ADCIRCA [Concomitant]
     Active Substance: TADALAFIL
  4. DOPAMINE [Concomitant]
     Active Substance: DOPAMINE\DOPAMINE HYDROCHLORIDE
  5. DILTIAZEM HYDROCHLORIDE EXTENDED RELEASE [Concomitant]
     Active Substance: DILTIAZEM HYDROCHLORIDE
  6. VITAMIN D3 [Concomitant]
     Active Substance: CHOLECALCIFEROL
  7. OPSUMIT [Suspect]
     Active Substance: MACITENTAN
     Indication: PULMONARY ARTERIAL HYPERTENSION
     Dosage: 10 MG, UNK
     Route: 048
     Dates: start: 20140609
  8. CELLCEPT [Concomitant]
     Active Substance: MYCOPHENOLATE MOFETIL\MYCOPHENOLATE MOFETIL HYDROCHLORIDE
  9. DIGITEK [Concomitant]
     Active Substance: DIGOXIN
  10. IRON [Concomitant]
     Active Substance: IRON
  11. LASIX [Concomitant]
     Active Substance: FUROSEMIDE
  12. VELETRI [Suspect]
     Active Substance: EPOPROSTENOL
     Indication: PULMONARY ARTERIAL HYPERTENSION
     Dosage: 22 NG/KG, PER MIN
     Route: 042
     Dates: start: 20150302

REACTIONS (1)
  - Flushing [Unknown]

NARRATIVE: CASE EVENT DATE: 20151112
